FAERS Safety Report 25530079 (Version 1)
Quarter: 2025Q3

REPORT INFORMATION
  Report Type: Spontaneous
  Country: JP (occurrence: JP)
  Receive Date: 20250708
  Receipt Date: 20250708
  Transmission Date: 20251021
  Serious: Yes (Death, Other)
  Sender: AMGEN
  Company Number: JP-AMGEN-JPNSP2025103879

PATIENT
  Age: 4 Decade
  Sex: Female

DRUGS (1)
  1. BLINCYTO [Suspect]
     Active Substance: BLINATUMOMAB
     Indication: Product used for unknown indication
     Route: 040

REACTIONS (4)
  - Immune effector cell-associated neurotoxicity syndrome [Recovering/Resolving]
  - Unevaluable event [Fatal]
  - Cytokine release syndrome [Recovering/Resolving]
  - Memory impairment [Recovering/Resolving]
